FAERS Safety Report 15650042 (Version 1)
Quarter: 2018Q4

REPORT INFORMATION
  Report Type: Spontaneous
  Country: FR (occurrence: FR)
  Receive Date: 20181123
  Receipt Date: 20181123
  Transmission Date: 20190205
  Serious: Yes (Other)
  Sender: FDA-Public Use
  Company Number: FR-TEVA-2018-FR-977344

PATIENT
  Age: 74 Year
  Sex: Male
  Weight: 63 kg

DRUGS (2)
  1. VALACICLOVIR [Suspect]
     Active Substance: VALACYCLOVIR HYDROCHLORIDE
     Indication: PROPHYLAXIS
     Dosage: 1000 MILLIGRAM DAILY;
     Route: 048
     Dates: start: 20171218, end: 20180509
  2. IMBRUVICA [Suspect]
     Active Substance: IBRUTINIB
     Indication: CHRONIC LYMPHOCYTIC LEUKAEMIA STAGE 3
     Dosage: 420 MILLIGRAM DAILY;
     Route: 048
     Dates: start: 20171218

REACTIONS (1)
  - Neutropenia [Recovered/Resolved]

NARRATIVE: CASE EVENT DATE: 20180411
